FAERS Safety Report 23972473 (Version 3)
Quarter: 2025Q4

REPORT INFORMATION
  Report Type: Spontaneous
  Country: US (occurrence: US)
  Receive Date: 20240613
  Receipt Date: 20251014
  Transmission Date: 20260117
  Serious: No
  Sender: SANOFI AVENTIS
  Company Number: US-SA-SAC20240610000238

PATIENT
  Age: 46 Year
  Sex: Female

DRUGS (4)
  1. DUPIXENT [Suspect]
     Active Substance: DUPILUMAB
     Indication: Dermatitis atopic
     Dosage: 300 MG, QOW
     Route: 058
     Dates: start: 202406
  2. GINGER ROOT [ZINGIBER OFFICINALE ROOT] [Concomitant]
     Dosage: UNK
  3. MELOXICAM [Concomitant]
     Active Substance: MELOXICAM
     Dosage: UNK
  4. ADULT MULTIVITAMIN [Concomitant]
     Dosage: UNK

REACTIONS (4)
  - Sleep disorder due to a general medical condition [Unknown]
  - Restlessness [Unknown]
  - Rash [Not Recovered/Not Resolved]
  - Skin discomfort [Not Recovered/Not Resolved]

NARRATIVE: CASE EVENT DATE: 20240101
